FAERS Safety Report 7403683-7 (Version None)
Quarter: 2011Q2

REPORT INFORMATION
  Report Type: 
  Country: None (occurrence: None)
  Receive Date: 20110408
  Receipt Date: 20110329
  Transmission Date: 20111010
  Serious: Yes (Hospitalization, Other)
  Sender: FDA-Public Use
  Company Number: PHHY2010US62491

PATIENT
  Sex: Male

DRUGS (1)
  1. GLEEVEC [Suspect]
     Dosage: 400 MG, QD
     Route: 048
     Dates: start: 20100101

REACTIONS (4)
  - GENERAL PHYSICAL HEALTH DETERIORATION [None]
  - NUTRITIONAL CONDITION ABNORMAL [None]
  - FALL [None]
  - COMPRESSION FRACTURE [None]
